FAERS Safety Report 13163008 (Version 1)
Quarter: 2017Q1

REPORT INFORMATION
  Report Type: Spontaneous
  Country: US (occurrence: US)
  Receive Date: 20170130
  Receipt Date: 20170130
  Transmission Date: 20170428
  Serious: No
  Sender: FDA-Public Use
  Company Number: US-BAYER-2017-017833

PATIENT
  Age: 38 Year

DRUGS (1)
  1. GADAVIST [Suspect]
     Active Substance: GADOBUTROL
     Dosage: 6.5 ML, ONCE
     Dates: start: 20170127, end: 20170127

REACTIONS (1)
  - Urticaria [None]

NARRATIVE: CASE EVENT DATE: 20170127
